FAERS Safety Report 24053207 (Version 1)
Quarter: 2024Q3

REPORT INFORMATION
  Report Type: Spontaneous
  Country: IN (occurrence: IN)
  Receive Date: 20240705
  Receipt Date: 20240705
  Transmission Date: 20241017
  Serious: Yes (Hospitalization, Other)
  Sender: BRISTOL MYERS SQUIBB
  Company Number: IN-BRISTOL-MYERS SQUIBB COMPANY-2024-103202

PATIENT
  Age: 12 Year
  Sex: Male

DRUGS (3)
  1. EFAVIRENZ [Suspect]
     Active Substance: EFAVIRENZ
     Indication: HIV infection
     Dates: start: 2019
  2. LAMIVUDINE [Concomitant]
     Active Substance: LAMIVUDINE
     Indication: HIV infection
     Dates: start: 2019
  3. ABACAVIR [Concomitant]
     Active Substance: ABACAVIR
     Indication: HIV infection

REACTIONS (1)
  - Lupus-like syndrome [Recovered/Resolved]
